FAERS Safety Report 21971560 (Version 2)
Quarter: 2023Q1

REPORT INFORMATION
  Report Type: Report from Study
  Country: US (occurrence: US)
  Receive Date: 20230209
  Receipt Date: 20230313
  Transmission Date: 20230417
  Serious: Yes (Hospitalization)
  Sender: FDA-Public Use
  Company Number: US-ARGENX-2023-ARGX-US000380

PATIENT

DRUGS (1)
  1. VYVGART [Suspect]
     Active Substance: EFGARTIGIMOD ALFA-FCAB
     Indication: Myasthenia gravis
     Dosage: 10 MG/KG
     Route: 042

REACTIONS (6)
  - Wound infection [Unknown]
  - Muscular weakness [Unknown]
  - Fall [Unknown]
  - Pain in extremity [Unknown]
  - Cellulitis [Unknown]
  - Myasthenia gravis crisis [Unknown]

NARRATIVE: CASE EVENT DATE: 20230203
